FAERS Safety Report 8479265-5 (Version None)
Quarter: 2012Q2

REPORT INFORMATION
  Report Type: 
  Country: None (occurrence: None)
  Receive Date: 20120629
  Receipt Date: 20120622
  Transmission Date: 20120825
  Serious: Yes (Hospitalization)
  Sender: FDA-Public Use
  Company Number: CA-GLAXOSMITHKLINE-A0977971A

PATIENT
  Sex: Female
  Weight: 53.2 kg

DRUGS (7)
  1. BORTEZOMIB [Suspect]
     Indication: MULTIPLE MYELOMA
     Dosage: 1.3MGM2 CYCLIC
     Route: 042
     Dates: start: 20120424
  2. ADVAIR DISKUS 100/50 [Suspect]
     Indication: DYSPNOEA
     Dosage: 125MCG TWICE PER DAY
     Route: 055
     Dates: start: 20110101
  3. DEXAMETHASONE [Suspect]
     Indication: MULTIPLE MYELOMA
     Dates: start: 20120424
  4. GSK2110183 [Suspect]
     Indication: MULTIPLE MYELOMA
     Route: 048
     Dates: start: 20120424
  5. SENOKOT [Concomitant]
     Indication: CONSTIPATION
  6. ATROVENT [Concomitant]
     Indication: DYSPNOEA
     Dosage: 500MCG SIX TIMES PER DAY
     Route: 055
     Dates: start: 20120518, end: 20120524
  7. LACTULOSE [Concomitant]
     Indication: CONSTIPATION
     Dates: start: 20120424

REACTIONS (2)
  - OESOPHAGEAL CANDIDIASIS [None]
  - PLEURAL EFFUSION [None]
